FAERS Safety Report 9996444 (Version 2)
Quarter: 2014Q1

REPORT INFORMATION
  Report Type: Spontaneous
  Country: FR (occurrence: FR)
  Receive Date: 20140311
  Receipt Date: 20140311
  Transmission Date: 20141002
  Serious: Yes (Hospitalization)
  Sender: FDA-Public Use
  Company Number: FR-ELI_LILLY_AND_COMPANY-FR201310002746

PATIENT
  Age: 69 Year
  Sex: Male
  Weight: 76 kg

DRUGS (8)
  1. ALIMTA [Suspect]
     Indication: LUNG ADENOCARCINOMA STAGE IV
     Dosage: 950 MG, EVERY 3 WEEKS
     Route: 042
     Dates: start: 20130906, end: 20130906
  2. CARBOPLATIN [Concomitant]
     Indication: LUNG ADENOCARCINOMA STAGE IV
     Dosage: 558 MG, EVERY 3 WEEKS
     Route: 042
     Dates: start: 20130906, end: 20130906
  3. PLAVIX [Concomitant]
     Indication: PERIPHERAL ARTERIAL OCCLUSIVE DISEASE
     Dosage: 75 MG, QD
     Route: 048
  4. CRESTOR [Concomitant]
     Indication: HYPERCHOLESTEROLAEMIA
     Dosage: 20 MG, QD
     Route: 048
  5. COVERSYL                           /00790702/ [Concomitant]
     Indication: HYPERTENSION
     Dosage: 5 MG, QD
     Route: 048
  6. PARIET [Concomitant]
     Indication: GASTROOESOPHAGEAL REFLUX DISEASE
     Dosage: 10 MG, QD
     Route: 048
  7. ACIDE FOLIQUE [Concomitant]
     Indication: PREMEDICATION
  8. VITAMIN B12                        /00056201/ [Concomitant]
     Indication: PREMEDICATION

REACTIONS (4)
  - Haematuria [Recovered/Resolved]
  - Pollakiuria [Recovered/Resolved]
  - Renal failure acute [Recovered/Resolved]
  - Off label use [Recovered/Resolved]
